FAERS Safety Report 10047416 (Version 1)
Quarter: 2014Q1

REPORT INFORMATION
  Report Type: Spontaneous
  Country: US (occurrence: None)
  Receive Date: 20140327
  Receipt Date: 20140327
  Transmission Date: 20141002
  Serious: Yes (Hospitalization)
  Sender: FDA-Public Use
  Company Number: DSU-2014-100300

PATIENT
  Age: 52 Year
  Sex: Female

DRUGS (1)
  1. BENICAR (OLMESARTAN MEDOXOMIL) TABLET, 20MG [Suspect]
     Indication: HYPERTENSION

REACTIONS (7)
  - Cardiac arrest [None]
  - Malabsorption [None]
  - Large intestine perforation [None]
  - Large intestine perforation [None]
  - Colitis [None]
  - Inflammation [None]
  - Lymphoid tissue hyperplasia [None]
